FAERS Safety Report 6236753-X (Version None)
Quarter: 2009Q2

REPORT INFORMATION
  Report Type: 
  Country: None (occurrence: None)
  Receive Date: 20090619
  Receipt Date: 20090610
  Transmission Date: 20091009
  Serious: Yes (Other)
  Sender: FDA-Public Use
  Company Number: PHHY2009GB23449

PATIENT
  Sex: Female

DRUGS (1)
  1. EXJADE [Suspect]
     Indication: IRON OVERLOAD
     Dosage: 1125 MG/DAY
     Route: 048
     Dates: start: 20090304

REACTIONS (3)
  - ABDOMINAL DISTENSION [None]
  - FAECES DISCOLOURED [None]
  - NAUSEA [None]
